FAERS Safety Report 25797828 (Version 1)
Quarter: 2025Q3

REPORT INFORMATION
  Report Type: Spontaneous
  Country: TR (occurrence: TR)
  Receive Date: 20250912
  Receipt Date: 20250912
  Transmission Date: 20251020
  Serious: Yes (Other)
  Sender: GILEAD
  Company Number: TR-GILEAD-2025-0727411

PATIENT
  Age: 62 Year
  Sex: Female

DRUGS (5)
  1. TRODELVY [Suspect]
     Active Substance: SACITUZUMAB GOVITECAN-HZIY
     Indication: Triple negative breast cancer
     Route: 065
     Dates: start: 20240812
  2. GRANEXA [Concomitant]
  3. ACETAMINOPHEN\CAFFEINE\CODEINE PHOSPHATE [Concomitant]
     Active Substance: ACETAMINOPHEN\CAFFEINE\CODEINE PHOSPHATE
  4. ESCITALOPRAM OXALATE [Concomitant]
     Active Substance: ESCITALOPRAM OXALATE
  5. FILGRASTIM [Concomitant]
     Active Substance: FILGRASTIM

REACTIONS (2)
  - Disease progression [Unknown]
  - Diarrhoea [Unknown]

NARRATIVE: CASE EVENT DATE: 20240812
